FAERS Safety Report 10184720 (Version 2)
Quarter: 2014Q2

REPORT INFORMATION
  Report Type: Spontaneous
  Country: CN (occurrence: CN)
  Receive Date: 20140521
  Receipt Date: 20140521
  Transmission Date: 20141212
  Serious: Yes (Death)
  Sender: FDA-Public Use
  Company Number: CN-ROCHE-1400312

PATIENT
  Age: 61 Year
  Sex: Male
  Weight: 60 kg

DRUGS (6)
  1. MABTHERA [Suspect]
     Indication: MANTLE CELL LYMPHOMA
     Route: 041
     Dates: start: 20130826, end: 20131217
  2. CYCLOPHOSPHAMIDE [Concomitant]
     Indication: MANTLE CELL LYMPHOMA
     Route: 041
     Dates: start: 20130827, end: 20131218
  3. DOXORUBICIN [Concomitant]
     Indication: DIFFUSE LARGE B-CELL LYMPHOMA
     Route: 041
     Dates: start: 20130827, end: 20131218
  4. VINCRISTINE [Concomitant]
     Indication: MANTLE CELL LYMPHOMA
     Route: 065
     Dates: start: 20130827, end: 20131218
  5. PREDNISONE [Concomitant]
     Indication: MANTLE CELL LYMPHOMA
     Route: 048
     Dates: start: 20130827, end: 20131222
  6. ENTECAVIR [Concomitant]
     Route: 048
     Dates: start: 20140127

REACTIONS (6)
  - Hepatitis B [Fatal]
  - Hepatic failure [Fatal]
  - Hepatic encephalopathy [Fatal]
  - Ventricular fibrillation [Fatal]
  - Alanine aminotransferase increased [Unknown]
  - Blood bilirubin increased [Unknown]
